FAERS Safety Report 8586125-8 (Version None)
Quarter: 2012Q3

REPORT INFORMATION
  Report Type: 
  Country: None (occurrence: None)
  Receive Date: 20120810
  Receipt Date: 20120803
  Transmission Date: 20120928
  Serious: Yes (Hospitalization)
  Sender: FDA-Public Use
  Company Number: BE-PFIZER INC-2012190732

PATIENT
  Age: 45 Year
  Sex: Female
  Weight: 86.2 kg

DRUGS (5)
  1. ELTHYRONE [Concomitant]
     Indication: BLOOD THYROID STIMULATING HORMONE DECREASED
     Dosage: UNK
     Dates: start: 20010618
  2. PRASTERONE [Concomitant]
     Indication: BLOOD LUTEINISING HORMONE DECREASED
     Dosage: UNK
     Dates: start: 20041209
  3. PRASTERONE [Concomitant]
     Indication: BLOOD FOLLICLE STIMULATING HORMONE DECREASED
  4. GENOTROPIN [Suspect]
     Dosage: 1 MG, 1X/DAY 7/WK
     Route: 058
     Dates: start: 20070618
  5. HYDROCORTISONE [Concomitant]
     Indication: BLOOD CORTICOTROPHIN DECREASED
     Dosage: UNK
     Dates: start: 20010618

REACTIONS (1)
  - HERNIA [None]
